FAERS Safety Report 9922420 (Version 3)
Quarter: 2014Q1

REPORT INFORMATION
  Report Type: Report from Study
  Country: ES (occurrence: DK)
  Receive Date: 20140225
  Receipt Date: 20140317
  Transmission Date: 20141002
  Serious: Yes (Other)
  Sender: FDA-Public Use
  Company Number: DK-FRI-1000054511

PATIENT
  Age: 77 Year
  Sex: Female

DRUGS (2)
  1. ACLIDINIUM [Suspect]
     Indication: CHRONIC OBSTRUCTIVE PULMONARY DISEASE
     Dosage: 2 DOSAGE FORMS
     Route: 055
     Dates: start: 20131121, end: 20131215
  2. VENTOLINE [Concomitant]

REACTIONS (1)
  - Oral mucosal blistering [Recovered/Resolved]
